FAERS Safety Report 13885776 (Version 1)
Quarter: 2017Q3

REPORT INFORMATION
  Report Type: Spontaneous
  Country: US (occurrence: US)
  Receive Date: 20170821
  Receipt Date: 20170821
  Transmission Date: 20171127
  Serious: No
  Sender: FDA-Public Use
  Company Number: US-B.I. PHARMACEUTICALS,INC./RIDGEFIELD-2017-BI-045258

PATIENT
  Sex: Female
  Weight: 87.1 kg

DRUGS (26)
  1. BENADRYL [Concomitant]
     Active Substance: DIPHENHYDRAMINE HYDROCHLORIDE
     Indication: INFECTION
     Route: 048
  2. FLUTICASONE. [Concomitant]
     Active Substance: FLUTICASONE
     Indication: NASAL CONGESTION
  3. INSULIN ASPART 100 UNIT/ML SOLUTION FOR INJECTION [Concomitant]
     Indication: TYPE 2 DIABETES MELLITUS
     Dosage: INJECT WITH MEALS PER SLIDING SCALE;?BG{ 80: NO INSULIN, 81-150 = 4?UNITS, 151 += 6 U , 200+ = 8 U 2
     Route: 065
  4. SPIRIVA [Suspect]
     Active Substance: TIOTROPIUM BROMIDE MONOHYDRATE
     Indication: BRONCHOSPASM
  5. ALBUTEROL HFA [Concomitant]
     Active Substance: ALBUTEROL SULFATE
     Indication: CHRONIC OBSTRUCTIVE PULMONARY DISEASE
     Route: 055
  6. FAMOTIDLNE [Concomitant]
     Indication: ABDOMINAL PAIN UPPER
  7. FAMOTIDLNE [Concomitant]
     Indication: ABDOMINAL PAIN
     Route: 048
  8. FLUTICASONE. [Concomitant]
     Active Substance: FLUTICASONE
     Indication: RHINITIS ALLERGIC
     Dosage: (50 MCG PER ACTUATION)
  9. ISOSORBIDE MONONITRATE. [Concomitant]
     Active Substance: ISOSORBIDE MONONITRATE
     Indication: CORONARY ARTERY DISEASE
     Route: 048
  10. ISOSORBIDE MONONITRATE. [Concomitant]
     Active Substance: ISOSORBIDE MONONITRATE
     Indication: CARDIAC DISORDER
  11. ROSUVASTATIN. [Concomitant]
     Active Substance: ROSUVASTATIN
     Indication: BLOOD CHOLESTEROL
  12. FAMOTIDLNE [Concomitant]
     Indication: DYSPEPSIA
  13. GABAPENTIN. [Concomitant]
     Active Substance: GABAPENTIN
     Indication: POST HERPETIC NEURALGIA
     Dosage: TAKE 2 CAPSULES IN MORNING AND 1?CAPSULE IN AFTERNOON AND 2?CAPSULES IN THE EVENING.
     Route: 065
  14. VITAMIN B-6 [Concomitant]
     Active Substance: PYRIDOXINE
     Indication: VITAMIN B COMPLEX DEFICIENCY
     Route: 048
  15. AMLODIPINE [Concomitant]
     Active Substance: AMLODIPINE BESYLATE
     Indication: HYPERTENSION
     Route: 048
  16. CARVEDLLOL [Concomitant]
     Active Substance: CARVEDILOL
     Indication: ATRIAL FIBRILLATION
     Route: 048
  17. .FUROSEMIDE [Concomitant]
     Indication: ATRIAL FIBRILLATION
     Dosage: TAKE 2 TABS IN MORNING AND 1 TAB IN ^ PERSISTENT ATRIAL FIBRILLATION (HC)?AFTERNOON. INCREASE TO 2 I
     Route: 065
  18. INSULIN DETEMIR [Concomitant]
     Active Substance: INSULIN DETEMIR
     Indication: TYPE 2 DIABETES MELLITUS
     Dosage: 10 UNITS IN AM AND 25 UNITS IN PM.??100 UNIT/ML (3 ML)
     Route: 065
  19. WARFARIN [Concomitant]
     Active Substance: WARFARIN
     Indication: PRODUCT USED FOR UNKNOWN INDICATION
     Dosage: 2.5MG ON TTHSA AND 5MG ALL?OTHER DAYS
     Route: 048
  20. FOLLC ACID [Concomitant]
     Indication: PRODUCT USED FOR UNKNOWN INDICATION
     Route: 048
  21. POTASSIUM CHLORIDE. [Concomitant]
     Active Substance: POTASSIUM CHLORIDE
     Indication: CARDIAC FAILURE CONGESTIVE
     Route: 048
  22. VITAMIN D3 [Concomitant]
     Active Substance: CHOLECALCIFEROL
     Indication: PRODUCT USED FOR UNKNOWN INDICATION
     Route: 048
  23. ROSUVASTATIN. [Concomitant]
     Active Substance: ROSUVASTATIN
     Indication: DIABETES MELLITUS
     Route: 065
  24. SPIRIVA [Suspect]
     Active Substance: TIOTROPIUM BROMIDE MONOHYDRATE
     Indication: CHRONIC OBSTRUCTIVE PULMONARY DISEASE
     Route: 055
  25. ALBUTEROL HFA [Concomitant]
     Active Substance: ALBUTEROL SULFATE
     Indication: ENTEROCOLITIS HAEMORRHAGIC
  26. ROSUVASTATIN. [Concomitant]
     Active Substance: ROSUVASTATIN
     Indication: CORONARY ARTERY DISEASE

REACTIONS (1)
  - Abscess [Unknown]
